FAERS Safety Report 6059745-2 (Version None)
Quarter: 2009Q1

REPORT INFORMATION
  Report Type: 
  Country: None (occurrence: None)
  Receive Date: 20090130
  Receipt Date: 20090120
  Transmission Date: 20090719
  Serious: Yes (Hospitalization, Other)
  Sender: FDA-Public Use
  Company Number: GB-PFIZER INC-2008064502

PATIENT

DRUGS (6)
  1. LYRICA [Suspect]
     Indication: SPINAL COLUMN STENOSIS
     Dosage: 25 MG, 1X/DAY
     Route: 048
     Dates: start: 20080726, end: 20080726
  2. LYRICA [Suspect]
     Indication: BACK PAIN
  3. LYRICA [Suspect]
     Indication: SCIATICA
  4. LYRICA [Suspect]
  5. LYRICA [Suspect]
     Indication: RADICULAR PAIN
  6. TRAMADOL HYDROCHLORIDE [Suspect]
     Dosage: 50 MG, 3X/DAY
     Route: 048

REACTIONS (10)
  - CHEST DISCOMFORT [None]
  - DIZZINESS [None]
  - DRUG INTERACTION [None]
  - HYPERHIDROSIS [None]
  - MALAISE [None]
  - PAIN [None]
  - PRESYNCOPE [None]
  - SYNCOPE [None]
  - TACHYCARDIA [None]
  - TREMOR [None]
